FAERS Safety Report 17424158 (Version 1)
Quarter: 2020Q1

REPORT INFORMATION
  Report Type: Spontaneous
  Country: US (occurrence: US)
  Receive Date: 20200217
  Receipt Date: 20200217
  Transmission Date: 20200409
  Serious: No
  Sender: FDA-Public Use
  Company Number: US-AUROBINDO-AUR-APL-2019-074074

PATIENT
  Sex: Female

DRUGS (1)
  1. OLMESARTAN MEDOXOMIL+HYDROCHLOROTHIAZIDE 20MG/12.5MG [Suspect]
     Active Substance: HYDROCHLOROTHIAZIDE\OLMESARTAN MEDOXOMIL
     Indication: BLOOD PRESSURE INCREASED
     Dosage: UNK
     Route: 065

REACTIONS (3)
  - Drug ineffective [Unknown]
  - Product colour issue [Unknown]
  - Product storage error [Unknown]
